FAERS Safety Report 4550176-0 (Version None)
Quarter: 2005Q1

REPORT INFORMATION
  Report Type: 
  Country: None (occurrence: None)
  Receive Date: 20050103
  Receipt Date: 20041208
  Transmission Date: 20050727
  Serious: Yes (Hospitalization, Other)
  Sender: FDA-Public Use
  Company Number: US_0412108732

PATIENT
  Age: 6 Year
  Sex: Male
  Weight: 74 kg

DRUGS (15)
  1. ILETIN-BEEF/ PORK REGULAS INSULIN (INSULIN, ANIMAL) [Suspect]
     Indication: DIABETES MELLITUS
     Dates: start: 19660101
  2. NPH ILETIN I (BEEF-PORK) [Suspect]
     Indication: DIABETES MELLITUS
     Dates: start: 19660101
  3. ULTRA-LENTE ILETIN INSULIN [Suspect]
     Indication: DIABETES MELLITUS
     Dates: start: 19681209
  4. ILETIN-BEEF/PORK SEMILENTE INSULIN (INSULIN, AINIMAL [Suspect]
     Indication: DIABETES MELLITUS
     Dates: start: 19681209
  5. LENTE ILETIN (BEEF-PORK) INSULIN ZINC [Suspect]
     Indication: DIABETES MELLITUS
  6. HUMULIN L [Suspect]
     Indication: DIABETES MELLITUS
     Dosage: 10 U/2 DAY
     Dates: start: 19920101
  7. HUMALOG [Suspect]
     Indication: DIABETES MELLITUS
     Dates: start: 19970101
  8. HUMULIN U [Suspect]
     Indication: DIABETES MELLITUS
     Dates: start: 19940610
  9. HUMULIN R [Suspect]
     Indication: DIABETES MELLITUS
     Dates: start: 19920101, end: 19970101
  10. HUMULIN N [Suspect]
     Indication: DIABETES MELLITUS
     Dosage: 14 U DAY
     Dates: start: 20040503
  11. INSULIN-INSULIN-ANIMAL (INSUL [Suspect]
     Indication: DIABETES MELLITUS
  12. ASPIRIN [Concomitant]
  13. CENTRUM [Concomitant]
  14. PREVACID [Concomitant]
  15. VITAMIN E [Concomitant]

REACTIONS (34)
  - ARTHROPOD BITE [None]
  - BENIGN PROSTATIC HYPERPLASIA [None]
  - BLOOD GLUCOSE FLUCTUATION [None]
  - BRAIN DAMAGE [None]
  - BURNING SENSATION [None]
  - CHEST PAIN [None]
  - CONTUSION [None]
  - CONVULSION [None]
  - DIABETES MELLITUS INADEQUATE CONTROL [None]
  - DILATATION ATRIAL [None]
  - ERYTHEMA [None]
  - FATIGUE [None]
  - FEELING COLD [None]
  - FINGER DEFORMITY [None]
  - GROIN PAIN [None]
  - HERNIA [None]
  - HYPOGLYCAEMIC SEIZURE [None]
  - IMPAIRED GASTRIC EMPTYING [None]
  - INCOHERENT [None]
  - IRRITABILITY [None]
  - LIMB INJURY [None]
  - MUSCLE INJURY [None]
  - MUSCLE STRAIN [None]
  - OEDEMA PERIPHERAL [None]
  - PAIN IN EXTREMITY [None]
  - PERIARTHRITIS [None]
  - PHARMACEUTICAL PRODUCT COMPLAINT [None]
  - PHARYNGITIS [None]
  - POLYURIA [None]
  - REMOVAL OF FOREIGN BODY [None]
  - SPEECH DISORDER [None]
  - STRESS [None]
  - TENDON RUPTURE [None]
  - WEIGHT DECREASED [None]
